FAERS Safety Report 23297873 (Version 1)
Quarter: 2023Q4

REPORT INFORMATION
  Report Type: Spontaneous
  Country: US (occurrence: US)
  Receive Date: 20231214
  Receipt Date: 20231214
  Transmission Date: 20240109
  Serious: No
  Sender: FDA-Public Use
  Company Number: US-FreseniusKabi-FK202319426

PATIENT
  Age: 34 Year
  Sex: Female
  Weight: 122 kg

DRUGS (1)
  1. DIPRIVAN [Suspect]
     Active Substance: ISOPROPYL ALCOHOL\PROPOFOL
     Indication: Sedation

REACTIONS (1)
  - Drug ineffective [Unknown]
